FAERS Safety Report 10207085 (Version 1)
Quarter: 2014Q2

REPORT INFORMATION
  Report Type: Spontaneous
  Country: US (occurrence: None)
  Receive Date: 20140528
  Receipt Date: 20140528
  Transmission Date: 20141212
  Serious: Yes (Life-Threatening, Hospitalization, Disabling)
  Sender: FDA-Public Use
  Company Number: None

PATIENT
  Age: 85 Year
  Sex: Male
  Weight: 82 kg

DRUGS (13)
  1. XARELTO [Suspect]
     Indication: ATRIAL FIBRILLATION
     Route: 048
     Dates: end: 20140212
  2. DILTIAZEM [Concomitant]
  3. COLCHICINE [Concomitant]
  4. LEXAPROL [Concomitant]
  5. FOLIC ACID [Concomitant]
  6. RANEXA [Concomitant]
  7. LOSARTAN [Concomitant]
  8. EPLERENONE [Concomitant]
  9. OMPERAZOLE [Concomitant]
  10. METOPROLOL [Concomitant]
  11. IMDUR [Concomitant]
  12. ALLOPURINAL [Concomitant]
  13. LUMIGAN EYE DROPS [Concomitant]

REACTIONS (5)
  - Fall [None]
  - Subdural haematoma [None]
  - Brain midline shift [None]
  - Skull fractured base [None]
  - Drug interaction [None]
